FAERS Safety Report 17445523 (Version 1)
Quarter: 2020Q1

REPORT INFORMATION
  Report Type: Spontaneous
  Country: US (occurrence: US)
  Receive Date: 20200221
  Receipt Date: 20200221
  Transmission Date: 20200409
  Serious: No
  Sender: FDA-Public Use
  Company Number: US-ASTRAZENECA-2020SE13874

PATIENT
  Sex: Male
  Weight: 95.3 kg

DRUGS (5)
  1. CRESTOR [Suspect]
     Active Substance: ROSUVASTATIN CALCIUM
     Indication: CARDIAC DISORDER
     Route: 048
  2. ROSUVASTATIN. [Suspect]
     Active Substance: ROSUVASTATIN
     Indication: CARDIAC DISORDER
     Route: 048
  3. ZOCOR [Concomitant]
     Active Substance: SIMVASTATIN
     Dosage: 10.0MG UNKNOWN
     Route: 065
  4. LIPITOR [Concomitant]
     Active Substance: ATORVASTATIN CALCIUM
     Dosage: 10.0MG UNKNOWN
     Route: 065
  5. ATORVASTATIN [Concomitant]
     Active Substance: ATORVASTATIN
     Dosage: 10.0MG UNKNOWN
     Route: 065

REACTIONS (2)
  - Dyspnoea [Unknown]
  - Muscle spasms [Unknown]
